FAERS Safety Report 6864542-1 (Version None)
Quarter: 2010Q3

REPORT INFORMATION
  Report Type: 
  Country: None (occurrence: None)
  Receive Date: 20100721
  Receipt Date: 20080330
  Transmission Date: 20110219
  Serious: Yes (Other)
  Sender: FDA-Public Use
  Company Number: US-PFIZER INC-2008028521

PATIENT
  Sex: Female
  Weight: 54.4 kg

DRUGS (6)
  1. CHANTIX [Suspect]
     Indication: SMOKING CESSATION THERAPY
     Dates: start: 20070101
  2. COFFEE [Suspect]
     Route: 048
  3. VITAMINS [Concomitant]
  4. ANTIBIOTICS [Concomitant]
     Indication: EAR INFECTION
     Dates: start: 20080327
  5. CLONAZEPAM [Concomitant]
  6. MELATONIN [Concomitant]

REACTIONS (11)
  - ABNORMAL DREAMS [None]
  - AGGRESSION [None]
  - ANXIETY [None]
  - CONSTIPATION [None]
  - DECREASED APPETITE [None]
  - DIARRHOEA [None]
  - FLATULENCE [None]
  - INSOMNIA [None]
  - MAJOR DEPRESSION [None]
  - NAUSEA [None]
  - SUICIDAL BEHAVIOUR [None]
